FAERS Safety Report 6923088-2 (Version None)
Quarter: 2010Q3

REPORT INFORMATION
  Report Type: 
  Country: None (occurrence: None)
  Receive Date: 20100813
  Receipt Date: 20100730
  Transmission Date: 20110219
  Serious: Yes (Hospitalization)
  Sender: FDA-Public Use
  Company Number: DE-ELI_LILLY_AND_COMPANY-DE201007007470

PATIENT
  Sex: Female

DRUGS (5)
  1. FORTEO [Suspect]
     Indication: OSTEOPOROSIS
     Dosage: UNK, UNKNOWN
     Route: 058
     Dates: start: 20091118, end: 20100101
  2. OXYGEN [Concomitant]
     Dosage: UNK, UNKNOWN
     Route: 065
  3. VERAPAMIL HCL [Concomitant]
     Indication: CARDIAC DISORDER
     Dosage: 240 MG, UNKNOWN
     Route: 065
  4. AQUAPHOR [Concomitant]
     Dosage: 40 MG, UNKNOWN
     Route: 065
  5. ANTIBIOTICS [Concomitant]
     Indication: INFECTION
     Dosage: UNK, AS NEEDED
     Route: 065

REACTIONS (1)
  - ARRHYTHMIA [None]
